FAERS Safety Report 4474610-X (Version None)
Quarter: 2004Q4

REPORT INFORMATION
  Report Type: 
  Country: None (occurrence: None)
  Receive Date: 20041008
  Receipt Date: 20040917
  Transmission Date: 20050328
  Serious: Yes (Hospitalization)
  Sender: FDA-Public Use
  Company Number: EWC040940716

PATIENT
  Age: 28 Year
  Sex: Male
  Weight: 54 kg

DRUGS (10)
  1. OLAZAPINE-ORAL (OLANZAPINE) [Suspect]
     Dosage: 5 MG DAY-FEW MONTHS
  2. PEGASYS (PEGINTERFERON ALFA-2A)PEGUS (RIBAVIRIN) [Concomitant]
  3. EFFEXOR XR [Concomitant]
  4. METHADONE HCL [Concomitant]
  5. TRAZODONE HCL [Concomitant]
  6. CLONAZEPAM [Concomitant]
  7. RMERON (MIRTAZAPINE) [Concomitant]
  8. ANTABUS (DISULFIRAM) [Concomitant]
  9. PANTOZOL (PANTOPRAZOLE SODIUM) [Concomitant]
  10. COPEGUS [Concomitant]

REACTIONS (5)
  - COGWHEEL RIGIDITY [None]
  - DRUG INTERACTION [None]
  - EXTRAPYRAMIDAL DISORDER [None]
  - FEELING ABNORMAL [None]
  - PARKINSONISM [None]
